FAERS Safety Report 9136919 (Version 1)
Quarter: 2013Q1

REPORT INFORMATION
  Report Type: Spontaneous
  Country: US (occurrence: US)
  Receive Date: 20130304
  Receipt Date: 20130304
  Transmission Date: 20140127
  Serious: No
  Sender: FDA-Public Use
  Company Number: US-ABBOTT-13P-163-1030575-00

PATIENT
  Age: 78 Year
  Sex: Male
  Weight: 108.96 kg

DRUGS (9)
  1. ANDROGEL [Suspect]
     Indication: BLOOD TESTOSTERONE DECREASED
     Dosage: 4 PUMPS PER DAY
     Dates: start: 201206
  2. ANDROGEL [Suspect]
  3. METFORMIN [Concomitant]
     Indication: DIABETES MELLITUS
  4. TRAMADOL [Concomitant]
     Indication: PAIN IN EXTREMITY
  5. BLOOD PRESSURE MEDICATION [Concomitant]
     Indication: HYPERTENSION
  6. FINASTERIDE [Concomitant]
     Indication: PROSTATOMEGALY
  7. UNKNOWN MEDICATION [Concomitant]
     Indication: PROSTATOMEGALY
  8. CHOLESTEROL MEDICATION [Concomitant]
     Indication: BLOOD CHOLESTEROL INCREASED
  9. ASPIRIN [Concomitant]
     Indication: PRODUCT USED FOR UNKNOWN INDICATION

REACTIONS (2)
  - Blood testosterone decreased [Not Recovered/Not Resolved]
  - Prostatic specific antigen increased [Not Recovered/Not Resolved]
